FAERS Safety Report 5082565-2 (Version None)
Quarter: 2006Q3

REPORT INFORMATION
  Report Type: 
  Country: None (occurrence: None)
  Receive Date: 20060814
  Receipt Date: 20060804
  Transmission Date: 20061208
  Serious: Yes (Hospitalization)
  Sender: FDA-Public Use
  Company Number: 14523

PATIENT
  Age: 59 Year
  Sex: Male
  Weight: 72.4 kg

DRUGS (13)
  1. CYTARABINE [Suspect]
     Indication: ACUTE MYELOID LEUKAEMIA
     Dosage: 1881 MG QD IV
     Route: 042
     Dates: start: 20060211, end: 20060215
  2. MITOXANTRONE [Suspect]
     Indication: ACUTE MYELOID LEUKAEMIA
     Dosage: 15 MG QD IV
     Route: 042
     Dates: start: 20060211, end: 20060215
  3. ETOPOSIDE [Suspect]
     Indication: ACUTE MYELOID LEUKAEMIA
     Dosage: 188 MG QD IV
     Route: 042
     Dates: start: 20060211, end: 20060215
  4. VORICONAZOLE [Concomitant]
  5. ALLOPURINOL [Concomitant]
  6. NORFLOXACIN [Concomitant]
  7. DIPHENHYDRAMINE [Concomitant]
  8. ACETAMINOPHEN [Concomitant]
  9. K-DUR 10 [Concomitant]
  10. COLCHICINE [Concomitant]
  11. VALACYCLOVIR HCL [Concomitant]
  12. VANCOMYCIN [Concomitant]
  13. PIPERACILLIN AND TAZOBACTAM [Concomitant]

REACTIONS (3)
  - CENTRAL LINE INFECTION [None]
  - FEBRILE NEUTROPENIA [None]
  - STAPHYLOCOCCAL INFECTION [None]
